FAERS Safety Report 9098351 (Version 1)
Quarter: 2013Q1

REPORT INFORMATION
  Report Type: Report from Study
  Country: RO (occurrence: RO)
  Receive Date: 20130213
  Receipt Date: 20130213
  Transmission Date: 20140127
  Serious: Yes (Other)
  Sender: FDA-Public Use
  Company Number: RO-AMGEN-ROUNI2013009980

PATIENT
  Age: 51 Year
  Sex: Female
  Weight: 94 kg

DRUGS (3)
  1. DARBEPOETIN ALFA [Suspect]
     Indication: PRODUCT USED FOR UNKNOWN INDICATION
     Dosage: 500 MUG, Q3WK
     Route: 058
     Dates: start: 20121005, end: 20121116
  2. RITUXIMAB [Concomitant]
     Indication: NON-HODGKIN^S LYMPHOMA
     Dosage: 800 MG, Q3WK
     Route: 042
  3. CYCLOPHOSPHAMIDE W/DOXORUBICIN/PREDNISONE/VIN [Concomitant]
     Indication: NON-HODGKIN^S LYMPHOMA
     Dosage: UNK UNK, Q3WK
     Route: 042

REACTIONS (1)
  - Vena cava thrombosis [Unknown]
